FAERS Safety Report 14057070 (Version 6)
Quarter: 2018Q2

REPORT INFORMATION
  Report Type: Report from Study
  Country: SI (occurrence: SI)
  Receive Date: 20171006
  Receipt Date: 20180518
  Transmission Date: 20180711
  Serious: Yes (Hospitalization, Other)
  Sender: FDA-Public Use
  Company Number: SI-BAYER-2017-166014

PATIENT
  Age: 74 Year
  Sex: Male

DRUGS (4)
  1. NEXAVAR [Suspect]
     Active Substance: SORAFENIB
     Indication: HEPATOCELLULAR CARCINOMA
     Dosage: 200 MG, BID
     Dates: start: 201709, end: 20170919
  2. NEXAVAR [Suspect]
     Active Substance: SORAFENIB
     Indication: HEPATOCELLULAR CARCINOMA
     Dosage: DAILY DOSE 400 MG (2X200 MG)
     Dates: start: 2017, end: 20171011
  3. NEXAVAR [Suspect]
     Active Substance: SORAFENIB
     Indication: HEPATOCELLULAR CARCINOMA
     Dosage: DAILY DOSE 400 MG (2X200 MG)
     Dates: start: 20170822, end: 20170911
  4. NEXAVAR [Suspect]
     Active Substance: SORAFENIB
     Indication: HEPATOCELLULAR CARCINOMA
     Dosage: DAILY DOSE 400 MG (2X200 MG)
     Dates: start: 20180327, end: 20180401

REACTIONS (14)
  - Hypertension [Not Recovered/Not Resolved]
  - Petechiae [Not Recovered/Not Resolved]
  - Haematochezia [Not Recovered/Not Resolved]
  - Blister [Not Recovered/Not Resolved]
  - Skin infection [Recovering/Resolving]
  - Haemorrhage [Not Recovered/Not Resolved]
  - Ammonia increased [Not Recovered/Not Resolved]
  - Confusional state [Not Recovered/Not Resolved]
  - Oedema peripheral [Recovering/Resolving]
  - Dehydration [Not Recovered/Not Resolved]
  - Dacryocystitis [Recovering/Resolving]
  - Skin mass [Recovering/Resolving]
  - Productive cough [None]
  - Varices oesophageal [Not Recovered/Not Resolved]

NARRATIVE: CASE EVENT DATE: 20170824
